FAERS Safety Report 25483163 (Version 1)
Quarter: 2025Q2

REPORT INFORMATION
  Report Type: Spontaneous
  Country: US (occurrence: US)
  Receive Date: 20250626
  Receipt Date: 20250626
  Transmission Date: 20250716
  Serious: No
  Sender: PFIZER
  Company Number: US-PFIZER INC-202500128641

PATIENT
  Age: 81 Year
  Sex: Female
  Weight: 56.689 kg

DRUGS (1)
  1. INLYTA [Suspect]
     Active Substance: AXITINIB
     Indication: Renal cancer

REACTIONS (3)
  - Hypoacusis [Unknown]
  - Ear infection [Unknown]
  - Ear discomfort [Unknown]
